FAERS Safety Report 10743145 (Version 7)
Quarter: 2016Q4

REPORT INFORMATION
  Report Type: Spontaneous
  Country: US (occurrence: US)
  Receive Date: 20150127
  Receipt Date: 20161028
  Transmission Date: 20170206
  Serious: No
  Sender: FDA-Public Use
  Company Number: US-GLAXOSMITHKLINE-A1076640A

PATIENT
  Age: 64 Year
  Sex: Male
  Weight: 97.7 kg

DRUGS (11)
  1. WELLBUTRIN [Suspect]
     Active Substance: BUPROPION HYDROCHLORIDE
     Indication: SMOKING CESSATION THERAPY
     Dosage: UNKNOWN DOSING
     Route: 048
     Dates: start: 2013, end: 2016
  2. LOSARTAN. [Concomitant]
     Active Substance: LOSARTAN
     Indication: HYPERTENSION
  3. ATENOLOL. [Concomitant]
     Active Substance: ATENOLOL
     Indication: HYPERTENSION
  4. LOVAZA [Concomitant]
     Active Substance: OMEGA-3-ACID ETHYL ESTERS
  5. CRESTOR [Concomitant]
     Active Substance: ROSUVASTATIN CALCIUM
     Indication: PRODUCT USED FOR UNKNOWN INDICATION
  6. NIASPAN [Concomitant]
     Active Substance: NIACIN
     Indication: BLOOD TRIGLYCERIDES INCREASED
  7. TANZEUM [Suspect]
     Active Substance: ALBIGLUTIDE
     Indication: TYPE 2 DIABETES MELLITUS
     Dosage: 50 MG, WE
  8. TANZEUM [Suspect]
     Active Substance: ALBIGLUTIDE
     Dosage: 50 MG, WE
     Route: 058
     Dates: start: 2015, end: 2016
  9. FOLIC ACID. [Concomitant]
     Active Substance: FOLIC ACID
     Indication: PRODUCT USED FOR UNKNOWN INDICATION
  10. TANZEUM [Suspect]
     Active Substance: ALBIGLUTIDE
     Dosage: UNK
  11. FENOFIBRATE. [Concomitant]
     Active Substance: FENOFIBRATE
     Indication: BLOOD CHOLESTEROL INCREASED

REACTIONS (13)
  - Injection site pain [Unknown]
  - Chest discomfort [Unknown]
  - Product preparation error [Unknown]
  - Feeling abnormal [Unknown]
  - Injection site bruising [Unknown]
  - Injection site erythema [Unknown]
  - Abdominal pain [Unknown]
  - Incorrect route of drug administration [Unknown]
  - Underdose [Unknown]
  - Chest pain [Unknown]
  - Headache [Unknown]
  - Agitation [Unknown]
  - Device use error [Unknown]

NARRATIVE: CASE EVENT DATE: 20160420
